FAERS Safety Report 4465086-7 (Version None)
Quarter: 2004Q4

REPORT INFORMATION
  Report Type: 
  Country: None (occurrence: None)
  Receive Date: 20041004
  Receipt Date: 20040922
  Transmission Date: 20050328
  Serious: Yes (Death, Hospitalization)
  Sender: FDA-Public Use
  Company Number: US-BRISTOL-MYERS SQUIBB COMPANY-12709507

PATIENT
  Age: 61 Year
  Sex: Male

DRUGS (1)
  1. ABILIFY [Suspect]
     Indication: SCHIZOPHRENIA, PARANOID TYPE
     Dosage: INITIATED AT 15 MG/DAY, INCREASED TO 30 MG/DAY IN 2ND WEEK OF SEP-2004.
     Route: 048

REACTIONS (2)
  - CEREBRAL ARTERY EMBOLISM [None]
  - NEUROLEPTIC MALIGNANT SYNDROME [None]
